FAERS Safety Report 6442453-3 (Version None)
Quarter: 2009Q4

REPORT INFORMATION
  Report Type: 
  Country: None (occurrence: None)
  Receive Date: 20091112
  Receipt Date: 20091102
  Transmission Date: 20100525
  Serious: Yes (Life-Threatening, Hospitalization, Disabling, Other)
  Sender: FDA-Public Use
  Company Number: ADR43192009

PATIENT
  Age: 58 Year
  Sex: Male

DRUGS (8)
  1. SIMVASTATIN [Suspect]
     Indication: BLOOD CHOLESTEROL
     Dosage: 40 MG, 1/1 DAYS
     Dates: end: 20090101
  2. CLARITHROMYCIN [Concomitant]
  3. ALFACALCIDOL [Concomitant]
  4. ALLOPURINOL [Concomitant]
  5. ASPIRIN [Concomitant]
  6. CYCLOSPORINE [Concomitant]
  7. IRBESARTAN [Concomitant]
  8. SILDENAFIL [Concomitant]

REACTIONS (5)
  - BLOOD CREATINE PHOSPHOKINASE INCREASED [None]
  - BLOOD POTASSIUM INCREASED [None]
  - METABOLIC ACIDOSIS [None]
  - MYOPATHY [None]
  - PARALYSIS [None]
